FAERS Safety Report 6685114-8 (Version None)
Quarter: 2010Q2

REPORT INFORMATION
  Report Type: 
  Country: None (occurrence: None)
  Receive Date: 20100416
  Receipt Date: 20090804
  Transmission Date: 20101027
  Serious: Yes (Other)
  Sender: FDA-Public Use
  Company Number: US-BRISTOL-MYERS SQUIBB COMPANY-14731269

PATIENT
  Age: 59 Year
  Sex: Female

DRUGS (3)
  1. CARBOPLATIN [Suspect]
     Indication: BREAST CANCER
     Dates: start: 20080601
  2. GEMCITABINE HCL [Suspect]
     Indication: BREAST CANCER
     Dates: start: 20080601
  3. AVASTIN [Suspect]
     Indication: BREAST CANCER
     Dates: start: 20080601

REACTIONS (1)
  - CARDIAC FAILURE [None]
